FAERS Safety Report 25970632 (Version 1)
Quarter: 2025Q4

REPORT INFORMATION
  Report Type: Spontaneous
  Country: EU (occurrence: None)
  Receive Date: 20251028
  Receipt Date: 20251028
  Transmission Date: 20260118
  Serious: Yes (Hospitalization, Other)
  Sender: UCB
  Company Number: EU-UCBSA-2025067341

PATIENT
  Age: 31 Year

DRUGS (16)
  1. LEVETIRACETAM [Suspect]
     Active Substance: LEVETIRACETAM
     Indication: Idiopathic generalised epilepsy
     Dosage: 1250 MILLIGRAM, 2X/DAY (BID)
  2. LEVETIRACETAM [Suspect]
     Active Substance: LEVETIRACETAM
     Dosage: 3000 MILLIGRAM, ONCE DAILY (QD)
  3. LEVETIRACETAM [Suspect]
     Active Substance: LEVETIRACETAM
     Dosage: 3000 MILLIGRAM, ONCE DAILY (QD)
  4. LEVETIRACETAM [Suspect]
     Active Substance: LEVETIRACETAM
     Dosage: 3000 MILLIGRAM, ONCE DAILY (QD)
  5. LACOSAMIDE [Suspect]
     Active Substance: LACOSAMIDE
     Indication: Idiopathic generalised epilepsy
     Dosage: 200 MILLIGRAM, 2X/DAY (BID)
  6. LACOSAMIDE [Suspect]
     Active Substance: LACOSAMIDE
     Dosage: 300 MILLIGRAM, ONCE DAILY (QD)
  7. LACOSAMIDE [Suspect]
     Active Substance: LACOSAMIDE
     Dosage: 400 MILLIGRAM, ONCE DAILY (QD)
  8. LACOSAMIDE [Suspect]
     Active Substance: LACOSAMIDE
     Dosage: 400 MILLIGRAM, ONCE DAILY (QD)
  9. LAMOTRIGINE [Concomitant]
     Active Substance: LAMOTRIGINE
     Indication: Seizure
     Dosage: 275 MILLIGRAM, ONCE DAILY (QD), 150?0?125 MG
  10. LAMOTRIGINE [Concomitant]
     Active Substance: LAMOTRIGINE
     Dosage: 100 MILLIGRAM, ONCE DAILY (QD)
  11. LAMOTRIGINE [Concomitant]
     Active Substance: LAMOTRIGINE
     Dosage: 250 MILLIGRAM, ONCE DAILY (QD)
  12. LAMOTRIGINE [Concomitant]
     Active Substance: LAMOTRIGINE
     Dosage: 275 MILLIGRAM, ONCE DAILY (QD), 150?0?125 MG
  13. LAMOTRIGINE [Concomitant]
     Active Substance: LAMOTRIGINE
     Dosage: 350 MILLIGRAM, ONCE DAILY (QD), 150?0?125 MG
  14. VALPROATE [Concomitant]
     Active Substance: VALPROIC ACID
     Indication: Seizure
     Dosage: 2000 MILLIGRAM, ONCE DAILY (QD)
  15. VALPROATE [Concomitant]
     Active Substance: VALPROIC ACID
     Dosage: 300 MILLIGRAM, ONCE DAILY (QD)
  16. VALPROATE [Concomitant]
     Active Substance: VALPROIC ACID
     Dosage: 600 MILLIGRAM, ONCE DAILY (QD)

REACTIONS (5)
  - Seizure [Unknown]
  - Status epilepticus [Unknown]
  - Intellectual disability [Unknown]
  - Quadriparesis [Unknown]
  - Wheelchair user [Unknown]
